FAERS Safety Report 16924248 (Version 1)
Quarter: 2019Q4

REPORT INFORMATION
  Report Type: Spontaneous
  Country: CN (occurrence: CN)
  Receive Date: 20191016
  Receipt Date: 20191016
  Transmission Date: 20200122
  Serious: Yes (Life-Threatening)
  Sender: FDA-Public Use
  Company Number: CN-PFIZER INC-2019441513

PATIENT
  Age: 34 Year
  Sex: Female
  Weight: 45 kg

DRUGS (6)
  1. SHIOMARIN [Concomitant]
     Active Substance: LATAMOXEF DISODIUM
     Indication: PNEUMONIA
     Dosage: 2 G, 2X/DAY
     Route: 041
     Dates: start: 20190824, end: 20190903
  2. TAZOCIN [Suspect]
     Active Substance: PIPERACILLIN SODIUM\TAZOBACTAM SODIUM
     Dosage: 4.5 G, 3X/DAY (ONCE EVERY 8 HOURS)
     Route: 041
     Dates: start: 20190909, end: 20190910
  3. SODIUM CHLORIDE. [Concomitant]
     Active Substance: SODIUM CHLORIDE
     Indication: VEHICLE SOLUTION USE
     Dosage: 100 ML, 2X/DAY
     Route: 041
     Dates: start: 20190822, end: 20190903
  4. TAZOCIN [Suspect]
     Active Substance: PIPERACILLIN SODIUM\TAZOBACTAM SODIUM
     Indication: ENDOCARDITIS
     Dosage: 4.5 G, 2X/DAY (ONCE EVERY 12 HOURS)
     Route: 041
     Dates: start: 20190822, end: 20190903
  5. SODIUM CHLORIDE. [Concomitant]
     Active Substance: SODIUM CHLORIDE
     Dosage: 100 ML, 3X/DAY
     Route: 041
     Dates: start: 20190909, end: 20190910
  6. SODIUM CHLORIDE. [Concomitant]
     Active Substance: SODIUM CHLORIDE
     Dosage: 100 ML, 2X/DAY
     Route: 041
     Dates: start: 20190824, end: 20190903

REACTIONS (7)
  - Blood count abnormal [Unknown]
  - Off label use [Unknown]
  - Lymphocyte count decreased [Unknown]
  - Product use in unapproved indication [Unknown]
  - Platelet count decreased [Unknown]
  - White blood cell count decreased [Unknown]
  - Bone marrow failure [Unknown]

NARRATIVE: CASE EVENT DATE: 20190822
